FAERS Safety Report 7717102 (Version 2)
Quarter: 2012Q4

REPORT INFORMATION
  Report Type: 
  Country: CN (occurrence: CN)
  Receive Date: 20100126
  Receipt Date: 20121002
  Transmission Date: 20130627
  Serious: Yes (Death)
  Sender: FDA-Public Use
  Company Number: CN-JNJFOC-20100105203

PATIENT
  Age: 55 Year
  Sex: Male

DRUGS (3)
  1. TYLENOL COLD [Suspect]
     Indication: NASOPHARYNGITIS
     Route: 048
     Dates: start: 20090816, end: 20090816
  2. PANADOL [Suspect]
     Indication: PAIN
     Dates: start: 20090816, end: 20090816
  3. PANADOL [Suspect]
     Indication: PYREXIA
     Dates: start: 20090816, end: 20090816

REACTIONS (10)
  - Congestive cardiomyopathy [Fatal]
  - Drug administration error [Fatal]
  - Cardiac failure congestive [Fatal]
  - Hepatic congestion [Fatal]
  - Superior vena cava syndrome [Fatal]
  - Pulmonary oedema [Fatal]
  - Dizziness [None]
  - Respiratory arrest [None]
  - Pain [None]
  - Skin discolouration [None]
